FAERS Safety Report 4558535-7 (Version None)
Quarter: 2005Q1

REPORT INFORMATION
  Report Type: 
  Country: None (occurrence: None)
  Receive Date: 20050121
  Receipt Date: 20050111
  Transmission Date: 20050727
  Serious: Yes (Hospitalization)
  Sender: FDA-Public Use
  Company Number: JP-JNJFOC-20050103914

PATIENT
  Age: 51 Year
  Sex: Male

DRUGS (2)
  1. PEPCID AC [Suspect]
  2. PEPCID AC [Suspect]
     Dosage: ^1 SACHET^

REACTIONS (3)
  - GASTRIC ULCER [None]
  - HAEMATEMESIS [None]
  - HAEMATOCHEZIA [None]
